FAERS Safety Report 9465047 (Version 3)
Quarter: 2014Q1

REPORT INFORMATION
  Report Type: Report from Study
  Country: DE (occurrence: DE)
  Receive Date: 20130819
  Receipt Date: 20140208
  Transmission Date: 20141002
  Serious: Yes (Hospitalization, Other)
  Sender: FDA-Public Use
  Company Number: DE-ROCHE-1260809

PATIENT
  Sex: Female
  Weight: 96 kg

DRUGS (25)
  1. RITUXIMAB [Suspect]
     Indication: RHEUMATOID ARTHRITIS
     Route: 042
     Dates: start: 20130204
  2. RITUXIMAB [Suspect]
     Route: 065
     Dates: start: 20130625
  3. RITUXIMAB [Suspect]
     Route: 065
     Dates: start: 20130726
  4. METHOTREXATE [Suspect]
     Indication: RHEUMATOID ARTHRITIS
     Dosage: NEXT DOSE: 11/OCT/2012
     Route: 048
     Dates: start: 20120611
  5. METHOTREXATE [Suspect]
     Dosage: NEXT DOSE: 25 JUN 2013
     Route: 048
     Dates: start: 20130108
  6. PREDNISOLONE [Concomitant]
     Indication: RHEUMATOID ARTHRITIS
     Route: 048
     Dates: start: 2008, end: 201305
  7. PREDNISOLONE [Concomitant]
     Route: 048
     Dates: start: 201305, end: 20130625
  8. PANTOPRAZOLE [Concomitant]
     Route: 048
     Dates: start: 2008
  9. EUTHYROX [Concomitant]
     Route: 065
  10. ALLOPURINOL [Concomitant]
     Route: 065
  11. DELIX (GERMANY) [Concomitant]
     Route: 065
  12. FOLSAN [Concomitant]
     Route: 065
  13. LODOTRA [Concomitant]
     Route: 048
     Dates: end: 201306
  14. RAMIPRIL [Concomitant]
     Route: 065
  15. CERTOLIZUMAB [Concomitant]
     Route: 065
     Dates: start: 20120611, end: 20120611
  16. CERTOLIZUMAB [Concomitant]
     Route: 065
     Dates: start: 20121011, end: 20121011
  17. CERTOLIZUMAB [Concomitant]
     Route: 065
     Dates: start: 20130108, end: 20130108
  18. SULFASALAZINE [Concomitant]
     Indication: RHEUMATOID ARTHRITIS
     Route: 065
     Dates: start: 201104, end: 20130108
  19. SULFASALAZINE [Concomitant]
     Indication: PANCYTOPENIA
     Route: 065
     Dates: start: 20120611
  20. SULFASALAZINE [Concomitant]
     Route: 065
     Dates: start: 20121011
  21. SULFASALAZINE [Concomitant]
     Route: 065
     Dates: start: 20130108
  22. LEFLUNOMIDE [Concomitant]
     Indication: RHEUMATOID ARTHRITIS
     Dosage: 10-20 MG
     Route: 065
     Dates: start: 201102, end: 20130104
  23. LEFLUNOMIDE [Concomitant]
     Indication: PANCYTOPENIA
     Route: 065
     Dates: start: 20120611
  24. LEFLUNOMIDE [Concomitant]
     Route: 065
     Dates: start: 20121011
  25. LEFLUNOMIDE [Concomitant]
     Route: 065
     Dates: start: 20130108

REACTIONS (15)
  - Thrombocytopenia [Unknown]
  - Anaemia [Unknown]
  - Leukopenia [Unknown]
  - Pancytopenia [Recovered/Resolved with Sequelae]
  - Aphthous stomatitis [Recovered/Resolved with Sequelae]
  - Deep vein thrombosis [Recovered/Resolved with Sequelae]
  - Pulmonary embolism [Recovered/Resolved with Sequelae]
  - Pneumonia [Recovered/Resolved with Sequelae]
  - Thrombocytopenia [Not Recovered/Not Resolved]
  - Anal haemorrhage [Recovered/Resolved]
  - Diverticulum intestinal [Unknown]
  - Colitis [Unknown]
  - Crohn^s disease [Unknown]
  - Antiphospholipid syndrome [Unknown]
  - Hypokalaemia [Not Recovered/Not Resolved]
